FAERS Safety Report 17449098 (Version 2)
Quarter: 2022Q4

REPORT INFORMATION
  Report Type: Spontaneous
  Country: DE (occurrence: DE)
  Receive Date: 20200224
  Receipt Date: 20221123
  Transmission Date: 20230113
  Serious: Yes (Hospitalization)
  Sender: FDA-Public Use
  Company Number: DE-ADRED-04162-01

PATIENT
  Age: 80 Year
  Sex: Male
  Weight: 70 kg

DRUGS (4)
  1. MOXONIDINE [Suspect]
     Active Substance: MOXONIDINE
     Indication: Product used for unknown indication
     Dosage: 0.2 MG, 1-0-0-0
     Route: 048
  2. RAMIPRIL [Suspect]
     Active Substance: RAMIPRIL
     Indication: Product used for unknown indication
     Dosage: 5 MG, 1-0-0-0
     Route: 048
  3. METOPROLOL [Suspect]
     Active Substance: METOPROLOL
     Indication: Product used for unknown indication
     Dosage: 50 MG, 1-0-0-0
     Route: 048
  4. AMLODIPINE BESYLATE [Suspect]
     Active Substance: AMLODIPINE BESYLATE
     Indication: Product used for unknown indication
     Dosage: 5 MG, 1-0-0-0
     Route: 048

REACTIONS (5)
  - Acute kidney injury [Unknown]
  - Hyperhidrosis [Unknown]
  - Dyspnoea exertional [Unknown]
  - Product prescribing error [Unknown]
  - Labelled drug-drug interaction medication error [Unknown]
